FAERS Safety Report 20701223 (Version 1)
Quarter: 2022Q2

REPORT INFORMATION
  Report Type: Other
  Country: IT (occurrence: None)
  Receive Date: 20220412
  Receipt Date: 20220412
  Transmission Date: 20220720
  Serious: Yes (Death)
  Sender: FDA-Public Use
  Company Number: IT-ROCHE-3068248

PATIENT

DRUGS (3)
  1. CAPECITABINE [Suspect]
     Active Substance: CAPECITABINE
     Indication: Metastatic gastric cancer
     Dosage: DAYS 1-14
     Route: 048
  2. EPIRUBICIN [Suspect]
     Active Substance: EPIRUBICIN
     Indication: Metastatic gastric cancer
     Dosage: DAY 1
     Route: 042
  3. OXALIPLATIN [Suspect]
     Active Substance: OXALIPLATIN
     Indication: Metastatic gastric cancer
     Dosage: DAY 1
     Route: 042

REACTIONS (1)
  - Gastrointestinal haemorrhage [Fatal]
